FAERS Safety Report 9000543 (Version 1)
Quarter: 2013Q1

REPORT INFORMATION
  Report Type: Spontaneous
  Country: US (occurrence: None)
  Receive Date: 20130103
  Receipt Date: 20130103
  Transmission Date: 20140127
  Serious: Yes (Other)
  Sender: FDA-Public Use
  Company Number: None

PATIENT
  Age: 42 Year
  Sex: Male
  Weight: 103.6 kg

DRUGS (4)
  1. VENLAFAXINE [Suspect]
     Indication: BIPOLAR I DISORDER
     Route: 048
     Dates: start: 20110719, end: 20120927
  2. VENLAFAXINE [Suspect]
     Indication: PANIC DISORDER
     Route: 048
     Dates: start: 20110719, end: 20120927
  3. VENLAFAXINE [Suspect]
     Indication: DYSTHYMIC DISORDER
     Route: 048
     Dates: start: 20110719, end: 20120927
  4. VENLAFAXINE [Suspect]
     Indication: POST-TRAUMATIC STRESS DISORDER
     Route: 048
     Dates: start: 20110719, end: 20120927

REACTIONS (2)
  - Treatment failure [None]
  - Therapeutic response decreased [None]
